FAERS Safety Report 7062917-1 (Version None)
Quarter: 2010Q4

REPORT INFORMATION
  Report Type: 
  Country: None (occurrence: None)
  Receive Date: 20101026
  Receipt Date: 20100225
  Transmission Date: 20110411
  Serious: Yes (Other)
  Sender: FDA-Public Use
  Company Number: US-PFIZER INC-2010025544

PATIENT
  Sex: Male

DRUGS (4)
  1. LIPITOR [Suspect]
     Indication: CARDIAC OPERATION
     Dosage: UNK
     Dates: start: 20100101, end: 20100101
  2. GLIPIZIDE [Concomitant]
     Dosage: 5 MG, UNK
  3. ENALAPRIL [Concomitant]
     Dosage: 10 MG, UNK
  4. METOPROLOL [Concomitant]
     Dosage: 25 MG, UNK

REACTIONS (1)
  - BLOOD GLUCOSE INCREASED [None]
